FAERS Safety Report 21062170 (Version 3)
Quarter: 2022Q3

REPORT INFORMATION
  Report Type: Report from Study
  Country: US (occurrence: US)
  Receive Date: 20220711
  Receipt Date: 20220714
  Transmission Date: 20221026
  Serious: Yes (Other)
  Sender: FDA-Public Use
  Company Number: US-ABBVIE-21K-163-4020729-00

PATIENT
  Age: 24 Year
  Sex: Female
  Weight: 77.180 kg

DRUGS (3)
  1. HUMIRA [Suspect]
     Active Substance: ADALIMUMAB
     Indication: Rheumatoid arthritis
     Route: 058
     Dates: start: 202011, end: 202107
  2. HUMIRA [Suspect]
     Active Substance: ADALIMUMAB
     Indication: Uveitis
     Route: 058
     Dates: start: 202108
  3. PROGESTERONE [Concomitant]
     Active Substance: PROGESTERONE
     Indication: Pregnancy
     Route: 065

REACTIONS (5)
  - Abortion spontaneous [Unknown]
  - Uterine dilation and curettage [Unknown]
  - Maternal exposure during pregnancy [Unknown]
  - Device leakage [Recovered/Resolved]
  - Uveitis [Recovered/Resolved]

NARRATIVE: CASE EVENT DATE: 20210701
